FAERS Safety Report 11939956 (Version 6)
Quarter: 2016Q2

REPORT INFORMATION
  Report Type: Report from Study
  Country: US (occurrence: US)
  Receive Date: 20160122
  Receipt Date: 20160610
  Transmission Date: 20160815
  Serious: Yes (Hospitalization, Other)
  Sender: FDA-Public Use
  Company Number: US-BIOGEN-2016BI00175688

PATIENT
  Age: 35 Year
  Sex: Male

DRUGS (7)
  1. IBUPROFEN. [Concomitant]
     Active Substance: IBUPROFEN
     Indication: PRODUCT USED FOR UNKNOWN INDICATION
     Route: 065
  2. TECFIDERA [Suspect]
     Active Substance: DIMETHYL FUMARATE
     Route: 048
     Dates: start: 2016, end: 201601
  3. TECFIDERA [Suspect]
     Active Substance: DIMETHYL FUMARATE
     Route: 048
  4. TECFIDERA [Suspect]
     Active Substance: DIMETHYL FUMARATE
     Indication: MULTIPLE SCLEROSIS
     Dosage: STARTING DOSE
     Route: 048
     Dates: start: 20150327, end: 20150403
  5. METHYLPREDNISOLONE. [Concomitant]
     Active Substance: METHYLPREDNISOLONE
     Indication: PRODUCT USED FOR UNKNOWN INDICATION
     Route: 065
  6. CIALIS [Concomitant]
     Active Substance: TADALAFIL
     Indication: PRODUCT USED FOR UNKNOWN INDICATION
     Route: 065
  7. TECFIDERA [Suspect]
     Active Substance: DIMETHYL FUMARATE
     Dosage: MAINTENANCE DOSE
     Route: 048
     Dates: start: 20150404, end: 20160104

REACTIONS (24)
  - Acute kidney injury [Recovered/Resolved]
  - Gallbladder non-functioning [Recovered/Resolved]
  - Multiple sclerosis relapse [Not Recovered/Not Resolved]
  - Amnesia [Recovered/Resolved]
  - Coordination abnormal [Not Recovered/Not Resolved]
  - Neuropathy peripheral [Unknown]
  - Decreased interest [Not Recovered/Not Resolved]
  - Fluid retention [Not Recovered/Not Resolved]
  - Hypoaesthesia [Not Recovered/Not Resolved]
  - Urosepsis [Recovered/Resolved]
  - Pyrexia [Recovered/Resolved]
  - Lung disorder [Not Recovered/Not Resolved]
  - General symptom [Not Recovered/Not Resolved]
  - Insomnia [Not Recovered/Not Resolved]
  - Blood urine present [Recovered/Resolved]
  - Fear [Unknown]
  - Visual field defect [Recovered/Resolved]
  - Anxiety [Not Recovered/Not Resolved]
  - Dizziness [Not Recovered/Not Resolved]
  - Fatigue [Not Recovered/Not Resolved]
  - Underdose [Recovered/Resolved]
  - Depressed mood [Not Recovered/Not Resolved]
  - Back pain [Not Recovered/Not Resolved]
  - Muscle spasms [Unknown]

NARRATIVE: CASE EVENT DATE: 201512
